FAERS Safety Report 8506833-4 (Version None)
Quarter: 2012Q3

REPORT INFORMATION
  Report Type: 
  Country: None (occurrence: None)
  Receive Date: 20120712
  Receipt Date: 20120709
  Transmission Date: 20120928
  Serious: Yes (Other)
  Sender: FDA-Public Use
  Company Number: US-PFIZER INC-2012140569

PATIENT
  Sex: Female

DRUGS (2)
  1. NORGESTREL AND ETHINYL ESTRADIOL [Suspect]
     Indication: CONTRACEPTION
     Dosage: UNK
  2. CRYSELLE [Suspect]
     Indication: CONTRACEPTION
     Dosage: UNK

REACTIONS (4)
  - PRODUCT QUALITY ISSUE [None]
  - UNINTENDED PREGNANCY [None]
  - DRUG INEFFECTIVE [None]
  - ABORTION SPONTANEOUS [None]
